FAERS Safety Report 23405020 (Version 1)
Quarter: 2024Q1

REPORT INFORMATION
  Report Type: Spontaneous
  Country: NZ (occurrence: NZ)
  Receive Date: 20240116
  Receipt Date: 20240116
  Transmission Date: 20240410
  Serious: Yes (Hospitalization, Other)
  Sender: FDA-Public Use
  Company Number: DEX 2020-0217(2)

PATIENT
  Age: 76 Year
  Sex: Female

DRUGS (13)
  1. DEXMEDETOMIDINE HYDROCHLORIDE [Suspect]
     Active Substance: DEXMEDETOMIDINE HYDROCHLORIDE
     Indication: Cancer pain
     Dosage: 28 MICROGRAM PER MILLIGRAM, TITRATING TO 1 ML/HOUR OVER THE FIRST 1 HOUR
     Route: 058
  2. DEXMEDETOMIDINE HYDROCHLORIDE [Suspect]
     Active Substance: DEXMEDETOMIDINE HYDROCHLORIDE
     Dosage: TITRATED BETWEEN 0.75 AND 2ML/HOUR, INFUSION INCREASED TO 1.5-2ML/HOUR OVERNIGHT
     Route: 058
  3. METHADONE [Suspect]
     Active Substance: METHADONE HYDROCHLORIDE
     Indication: Cancer pain
     Dosage: 22.5 MG (7.5 MG,1 IN 8 HR)
     Route: 048
  4. METHADONE [Suspect]
     Active Substance: METHADONE HYDROCHLORIDE
     Dosage: UNK, TITRATED WITH MINIMAL BENEFIT
     Route: 058
  5. METHADONE [Suspect]
     Active Substance: METHADONE HYDROCHLORIDE
     Dosage: 25 MG/ OVER 24 HOURS, THEN 50% DOSE REDUCTION
     Route: 058
  6. METHADONE [Suspect]
     Active Substance: METHADONE HYDROCHLORIDE
     Dosage: 10 MG
     Route: 065
  7. METHADONE [Suspect]
     Active Substance: METHADONE HYDROCHLORIDE
     Dosage: 8 MG
     Route: 065
  8. MIDAZOLAM [Suspect]
     Active Substance: MIDAZOLAM
     Indication: Cancer pain
     Dosage: 10 MG, QD
     Route: 058
  9. MIDAZOLAM [Suspect]
     Active Substance: MIDAZOLAM
     Dosage: 15 MG
     Route: 065
  10. KETAMINE [Suspect]
     Active Substance: KETAMINE
     Indication: Cancer pain
     Dosage: 100 MG, QD
     Route: 058
  11. KETAMINE [Suspect]
     Active Substance: KETAMINE
     Dosage: INCREASED TO 300MG OVER 2 DAYS
     Route: 065
  12. KETAMINE [Suspect]
     Active Substance: KETAMINE
     Dosage: UNK
     Route: 065
  13. KETAMINE [Suspect]
     Active Substance: KETAMINE
     Dosage: 200 MG
     Route: 065

REACTIONS (7)
  - Product use issue [Unknown]
  - Incorrect route of product administration [Unknown]
  - Product use in unapproved indication [Unknown]
  - Drug interaction [Unknown]
  - Toxicity to various agents [Unknown]
  - Drug withdrawal syndrome [Unknown]
  - Administration site pallor [Recovered/Resolved]
